FAERS Safety Report 8333180-6 (Version None)
Quarter: 2012Q1

REPORT INFORMATION
  Report Type: 
  Country: None (occurrence: None)
  Receive Date: 20120327
  Receipt Date: 20110225
  Transmission Date: 20120608
  Serious: Yes (Other)
  Sender: FDA-Public Use
  Company Number: PHHY2011US16109

PATIENT
  Sex: Female

DRUGS (2)
  1. SPRYCEL [Suspect]
     Dosage: 3 DF, PER WEEK
  2. GLEEVEC [Suspect]
     Dosage: 100 MG, TID

REACTIONS (4)
  - MUCOSAL INFLAMMATION [None]
  - GASTROINTESTINAL INFECTION [None]
  - GASTROINTESTINAL HAEMORRHAGE [None]
  - STOMATITIS [None]
